FAERS Safety Report 25125276 (Version 1)
Quarter: 2025Q1

REPORT INFORMATION
  Report Type: Spontaneous
  Country: US (occurrence: None)
  Receive Date: 20250326
  Receipt Date: 20250326
  Transmission Date: 20250409
  Serious: Yes (Other)
  Sender: FDA-CTU
  Company Number: None

PATIENT
  Age: 73 Year
  Sex: Female

DRUGS (2)
  1. RETEVMO [Suspect]
     Active Substance: SELPERCATINIB
     Indication: Cancer in remission
     Dosage: FREQUENCY : TWICE A DAY;?
     Route: 048
     Dates: start: 20241224, end: 20250320
  2. RETEVMO [Suspect]
     Active Substance: SELPERCATINIB
     Indication: Lung neoplasm malignant

REACTIONS (3)
  - Headache [None]
  - Balance disorder [None]
  - Rash [None]

NARRATIVE: CASE EVENT DATE: 20241226
